FAERS Safety Report 10238147 (Version 1)
Quarter: 2014Q2

REPORT INFORMATION
  Report Type: Report from Study
  Country: DE (occurrence: DE)
  Receive Date: 20140616
  Receipt Date: 20140616
  Transmission Date: 20141212
  Serious: Yes (Hospitalization)
  Sender: FDA-Public Use
  Company Number: PHHY2014DE073027

PATIENT
  Sex: Male

DRUGS (7)
  1. AMN107 [Suspect]
     Indication: CHRONIC MYELOID LEUKAEMIA
     Dosage: 600 MG, PER DAY
     Route: 048
     Dates: start: 20140117, end: 20140312
  2. METFORMIN [Concomitant]
     Indication: DIABETES MELLITUS
     Dosage: 1000 MG, PER DAY
  3. AMLODIPINE W/VALSARTAN [Concomitant]
     Indication: HYPERTENSION
     Dosage: 1 DF, DAILY
  4. CLOPIDOGREL [Concomitant]
     Indication: CEREBROVASCULAR ACCIDENT
     Dosage: 75 MG, PER DAY
     Dates: start: 200605
  5. ISOMONIT [Concomitant]
     Indication: CEREBROVASCULAR ACCIDENT
     Dosage: 20 MG, PER DAY
     Dates: start: 200605
  6. METOHEXAL [Concomitant]
     Indication: CORONARY ARTERY DISEASE
     Dosage: 47.5 MG, PER DAY
  7. METOHEXAL [Concomitant]
     Indication: HYPERTENSION

REACTIONS (2)
  - Hydrocholecystis [Recovered/Resolved]
  - Abdominal pain upper [Recovered/Resolved]
